FAERS Safety Report 4809181-9 (Version None)
Quarter: 2005Q4

REPORT INFORMATION
  Report Type: 
  Country: None (occurrence: None)
  Receive Date: 20051021
  Receipt Date: 20030716
  Transmission Date: 20060501
  Serious: No
  Sender: FDA-Public Use
  Company Number: EWC030735649

PATIENT
  Age: 41 Year
  Sex: Female

DRUGS (3)
  1. OLANZAPINE [Suspect]
     Indication: SCHIZOPHRENIA, PARANOID TYPE
     Dosage: 30 MG/DAY
     Dates: start: 20030611
  2. CLOPIXOL (ZUCLOPENTHIXOL DECANOATE) [Concomitant]
  3. NOZINAN (LEVOMEPROMAZINE) [Concomitant]

REACTIONS (3)
  - LEUKOPENIA [None]
  - LYMPHOCYTE COUNT DECREASED [None]
  - PLATELET COUNT DECREASED [None]
